FAERS Safety Report 23852768 (Version 6)
Quarter: 2025Q2

REPORT INFORMATION
  Report Type: Report from Study
  Country: GB (occurrence: GB)
  Receive Date: 20240514
  Receipt Date: 20250527
  Transmission Date: 20250717
  Serious: Yes (Death, Hospitalization, Disabling, Other)
  Sender: NOVARTIS
  Company Number: GB-002147023-NVSC2024GB099203

PATIENT
  Age: 71 Year
  Sex: Male

DRUGS (2)
  1. MAYZENT [Suspect]
     Active Substance: SIPONIMOD
     Indication: Secondary progressive multiple sclerosis
     Dosage: 1 MG, QD
     Route: 048
     Dates: start: 20221216
  2. MAYZENT [Suspect]
     Active Substance: SIPONIMOD
     Dosage: 2 MG, QD
     Route: 048
     Dates: end: 202504

REACTIONS (10)
  - Lower respiratory tract infection [Fatal]
  - Pneumonia [Fatal]
  - Colitis [Not Recovered/Not Resolved]
  - Cerebrovascular accident [Unknown]
  - Monoparesis [Unknown]
  - Dysstasia [Unknown]
  - Inflammatory marker increased [Unknown]
  - Urinary tract infection [Unknown]
  - Pyrexia [Unknown]
  - Chromaturia [Unknown]

NARRATIVE: CASE EVENT DATE: 20240101
